FAERS Safety Report 7164202-6 (Version None)
Quarter: 2010Q4

REPORT INFORMATION
  Report Type: 
  Country: None (occurrence: None)
  Receive Date: 20101123
  Receipt Date: 20100806
  Transmission Date: 20110411
  Serious: No
  Sender: FDA-Public Use
  Company Number: 015918

PATIENT
  Sex: Male

DRUGS (3)
  1. CIMZIA [Suspect]
     Indication: CROHN'S DISEASE
     Dosage: SUBCUTANEOUS
     Route: 058
     Dates: start: 20090207
  2. CIMZIA [Suspect]
     Dosage: 400 MG 1X/28 DAYS; SUBCUTANEOUS
     Route: 058
     Dates: start: 20100708
  3. CIMZIA [Suspect]
     Dosage: 400 MG 1X/28 DAYS, SUBCUTANEOUS
     Route: 058
     Dates: start: 20100805

REACTIONS (1)
  - FUNGAL INFECTION [None]
